FAERS Safety Report 9519609 (Version 1)
Quarter: 2013Q1

REPORT INFORMATION
  Report Type: Spontaneous
  Country: US (occurrence: None)
  Receive Date: 20130305
  Receipt Date: 20130305
  Transmission Date: 20140127
  Serious: Yes (Hospitalization)
  Sender: FDA-Public Use
  Company Number: 163-21880-11121180

PATIENT
  Age: 69 Year
  Sex: Male

DRUGS (1)
  1. REVLIMID [Suspect]
     Indication: PLASMA CELL MYELOMA
     Dosage: 10 MG. 1 IN 1 D, PO
     Route: 048
     Dates: start: 201110

REACTIONS (5)
  - Spinal fracture [None]
  - Pneumonia [None]
  - Dyspnoea [None]
  - Fatigue [None]
  - Muscle spasms [None]
